FAERS Safety Report 19817321 (Version 1)
Quarter: 2021Q3

REPORT INFORMATION
  Report Type: Spontaneous
  Country: US (occurrence: US)
  Receive Date: 20210910
  Receipt Date: 20210910
  Transmission Date: 20211014
  Serious: No
  Sender: FDA-Public Use
  Company Number: US-PAIPHARMA-2020-US-020250

PATIENT
  Age: 62 Year
  Sex: Female
  Weight: 72.58 kg

DRUGS (1)
  1. LACTULOSE (NON?SPECIFIC) [Suspect]
     Active Substance: LACTULOSE
     Indication: CONSTIPATION
     Dosage: AS PRESCRIBED BY HCP
     Route: 048
     Dates: start: 2003

REACTIONS (2)
  - Drug ineffective [Not Recovered/Not Resolved]
  - Constipation [Not Recovered/Not Resolved]

NARRATIVE: CASE EVENT DATE: 20200921
